FAERS Safety Report 19824169 (Version 2)
Quarter: 2021Q3

REPORT INFORMATION
  Report Type: Spontaneous
  Country: JP (occurrence: JP)
  Receive Date: 20210913
  Receipt Date: 20210922
  Transmission Date: 20211014
  Serious: Yes (Hospitalization, Other)
  Sender: FDA-Public Use
  Company Number: JP-ASTRAZENECA-2021A721614

PATIENT
  Age: 56 Year
  Sex: Male
  Weight: 84 kg

DRUGS (8)
  1. CRESTOR [Concomitant]
     Active Substance: ROSUVASTATIN CALCIUM
     Dosage: 1 DF BEFORE THE BREAKFAST, NUMBER OF SEPARATE DOSAGES UNKNOWN
     Route: 048
  2. ALACEPUL [Concomitant]
     Dosage: 1 DF BEFORE THE DINNER, NUMBER OF SEPARATE DOSAGES UNKNOWN
     Route: 048
  3. SEIBULE [Concomitant]
     Active Substance: MIGLITOL
     Dosage: JUST BEFORE MEALS
     Route: 048
  4. METACT [Concomitant]
     Active Substance: METFORMIN HYDROCHLORIDE\PIOGLITAZONE HYDROCHLORIDE
     Dosage: 1 DF BEFORE THE BREAKFAST, NUMBER OF SEPARATE DOSAGES UNKNOWN
     Route: 048
  5. REZALTAS [Concomitant]
     Active Substance: AZELNIDIPINE\OLMESARTAN MEDOXOMIL
     Dosage: 1 DF BEFORE THE BREAKFAST, NUMBER OF SEPARATE DOSAGES UNKNOWN
     Route: 048
  6. METGLUCO [Concomitant]
     Active Substance: METFORMIN HYDROCHLORIDE
     Dosage: 1 DF BEFORE THE DINNER, NUMBER OF SEPARATE DOSAGES UNKNOWN
     Route: 048
  7. BYETTA [Suspect]
     Active Substance: EXENATIDE
     Indication: TYPE 2 DIABETES MELLITUS
     Route: 058
     Dates: start: 201211, end: 20130215
  8. GLIMICRON [Concomitant]
     Active Substance: GLICLAZIDE
     Dosage: JUST BEFORE MEALS
     Route: 048

REACTIONS (2)
  - Pancreatitis necrotising [Recovering/Resolving]
  - Pancreatic duct rupture [Unknown]

NARRATIVE: CASE EVENT DATE: 2013
